FAERS Safety Report 7657129-4 (Version None)
Quarter: 2011Q3

REPORT INFORMATION
  Report Type: 
  Country: None (occurrence: None)
  Receive Date: 20110804
  Receipt Date: 20110404
  Transmission Date: 20111222
  Serious: No
  Sender: FDA-Public Use
  Company Number: US-GLAXOSMITHKLINE-A0921299A

PATIENT
  Age: 71 Year
  Sex: Female

DRUGS (7)
  1. ADVAIR DISKUS 100/50 [Suspect]
     Indication: DYSPNOEA
     Dosage: 2PUFF TWICE PER DAY
     Route: 055
     Dates: start: 20110226
  2. MYLANTA [Concomitant]
  3. NADOLOL [Concomitant]
  4. FLUCONAZOLE [Concomitant]
  5. ALBUTEROL INHALER [Concomitant]
  6. METFORMIN HCL [Concomitant]
  7. PREDNISONE [Concomitant]

REACTIONS (4)
  - HYPOAESTHESIA [None]
  - CANDIDIASIS [None]
  - ORAL PAIN [None]
  - TONGUE DISORDER [None]
